FAERS Safety Report 4982306-0 (Version None)
Quarter: 2006Q2

REPORT INFORMATION
  Report Type: 
  Country: None (occurrence: None)
  Receive Date: 20060425
  Receipt Date: 20060403
  Transmission Date: 20061013
  Serious: Yes (Other)
  Sender: FDA-Public Use
  Company Number: JP-ROCHE-444607

PATIENT
  Age: 70 Year
  Sex: Female
  Weight: 54 kg

DRUGS (1)
  1. ROCEPHIN [Suspect]
     Indication: BRONCHITIS
     Route: 041
     Dates: start: 20060331, end: 20060331

REACTIONS (5)
  - BLOOD PRESSURE DIASTOLIC DECREASED [None]
  - EPILEPSY [None]
  - LOSS OF CONSCIOUSNESS [None]
  - RESPIRATORY FAILURE [None]
  - URINARY INCONTINENCE [None]
